FAERS Safety Report 6616696-X (Version None)
Quarter: 2010Q1

REPORT INFORMATION
  Report Type: 
  Country: None (occurrence: None)
  Receive Date: 20100305
  Receipt Date: 20100222
  Transmission Date: 20100710
  Serious: Yes (Hospitalization)
  Sender: FDA-Public Use
  Company Number: US-WYE-H13817010

PATIENT
  Sex: Female
  Weight: 81.72 kg

DRUGS (5)
  1. EFFEXOR [Suspect]
     Dosage: UNKNOWN
  2. METOPROLOL TARTRATE [Concomitant]
     Indication: HYPERTENSION
     Dosage: UNKNOWN
  3. CHANTIX [Suspect]
     Indication: EX-TOBACCO USER
     Route: 048
     Dates: start: 20090101, end: 20090801
  4. CHANTIX [Suspect]
     Dosage: STARTER PACK, FOLLOWED BY 1 MG BID
     Route: 048
     Dates: start: 20091022
  5. CHANTIX [Suspect]
     Dosage: UNKNOWN
     Dates: end: 20090601

REACTIONS (3)
  - RASH [None]
  - URTICARIA [None]
  - WOUND [None]
